FAERS Safety Report 14197991 (Version 2)
Quarter: 2017Q4

REPORT INFORMATION
  Report Type: Spontaneous
  Country: LV (occurrence: LV)
  Receive Date: 20171117
  Receipt Date: 20171130
  Transmission Date: 20180321
  Serious: Yes (Other)
  Sender: FDA-Public Use
  Company Number: LV-ROCHE-2025653

PATIENT
  Sex: Female

DRUGS (15)
  1. OMALIZUMAB. [Suspect]
     Active Substance: OMALIZUMAB
     Indication: ANGIOEDEMA
     Route: 058
     Dates: start: 2016, end: 2016
  2. DEXAMETHASONE. [Concomitant]
     Active Substance: DEXAMETHASONE
     Dosage: 4 MG, UNK
     Route: 065
     Dates: start: 20160816
  3. MONTELUKAST SODIUM. [Concomitant]
     Active Substance: MONTELUKAST SODIUM
     Indication: PRODUCT USED FOR UNKNOWN INDICATION
     Route: 065
  4. DAPSONE. [Concomitant]
     Active Substance: DAPSONE
     Indication: PRODUCT USED FOR UNKNOWN INDICATION
     Route: 065
  5. LEVOCETIRIZINE [Concomitant]
     Active Substance: LEVOCETIRIZINE
     Dosage: 10 MG, QD
     Route: 065
     Dates: start: 20161004, end: 20161111
  6. OMALIZUMAB. [Suspect]
     Active Substance: OMALIZUMAB
     Indication: CHRONIC SPONTANEOUS URTICARIA
     Route: 058
     Dates: start: 201607, end: 201607
  7. OMALIZUMAB. [Suspect]
     Active Substance: OMALIZUMAB
     Route: 058
     Dates: start: 20161129, end: 20161223
  8. DEXAMETHASONE. [Concomitant]
     Active Substance: DEXAMETHASONE
     Indication: PRODUCT USED FOR UNKNOWN INDICATION
     Dosage: UNK
     Route: 030
  9. RANITIDINE. [Concomitant]
     Active Substance: RANITIDINE
     Indication: PRODUCT USED FOR UNKNOWN INDICATION
     Route: 065
  10. LEVOCETIRIZINE [Concomitant]
     Active Substance: LEVOCETIRIZINE
     Indication: CHRONIC SPONTANEOUS URTICARIA
     Route: 065
  11. DEXAMETHASONE. [Concomitant]
     Active Substance: DEXAMETHASONE
     Dosage: 6 MG, UNK
     Route: 030
     Dates: start: 20160816, end: 2016
  12. SEQUIFENADINE [Concomitant]
     Indication: CHRONIC SPONTANEOUS URTICARIA
     Route: 065
  13. PREDNISOLONE. [Concomitant]
     Active Substance: PREDNISOLONE
     Indication: CHRONIC SPONTANEOUS URTICARIA
     Dosage: 30-40 MG, QD
     Route: 065
  14. RANITIDINE. [Concomitant]
     Active Substance: RANITIDINE
     Route: 065
     Dates: start: 20161129
  15. OMALIZUMAB. [Suspect]
     Active Substance: OMALIZUMAB
     Route: 058
     Dates: start: 20161111, end: 20161129

REACTIONS (18)
  - Vision blurred [Unknown]
  - Face oedema [Recovered/Resolved]
  - Asthma [Unknown]
  - Myalgia [Recovered/Resolved]
  - Dry mouth [Unknown]
  - Orthopnoea [Unknown]
  - Oedema peripheral [Recovered/Resolved]
  - Burning sensation [Unknown]
  - Urticaria [Unknown]
  - Xerophthalmia [Unknown]
  - Arthralgia [Recovering/Resolving]
  - Dyspnoea [Unknown]
  - Heart rate increased [Unknown]
  - Blood pressure increased [Unknown]
  - Oropharyngeal candidiasis [Recovered/Resolved]
  - Muscle spasms [Unknown]
  - Dizziness [Unknown]
  - Muscular weakness [Unknown]

NARRATIVE: CASE EVENT DATE: 2016
